FAERS Safety Report 9004042 (Version 1)
Quarter: 2013Q1

REPORT INFORMATION
  Report Type: Spontaneous
  Country: US (occurrence: US)
  Receive Date: 20130109
  Receipt Date: 20130109
  Transmission Date: 20140127
  Serious: No
  Sender: FDA-Public Use
  Company Number: US-009507513-1301USA000609

PATIENT
  Sex: Female
  Weight: 75.28 kg

DRUGS (12)
  1. LISINOPRIL [Suspect]
     Dosage: UNK
     Route: 048
     Dates: start: 201207
  2. METOPROLOL [Concomitant]
     Dosage: 25 MG, BID
  3. AMLODIPINE [Concomitant]
  4. CLONAZEPAM [Concomitant]
  5. FUROSEMIDE [Concomitant]
  6. OMEPRAZOLE [Concomitant]
  7. SIMVASTATIN [Concomitant]
  8. ALENDRONATO [Concomitant]
  9. ASPIRIN [Concomitant]
  10. FOLIC ACID [Concomitant]
  11. ASCORBIC ACID [Concomitant]
  12. CALCIUM (UNSPECIFIED) (+) GLUCOSAMINE [Concomitant]

REACTIONS (1)
  - Cough [Unknown]
